FAERS Safety Report 14686099 (Version 1)
Quarter: 2018Q1

REPORT INFORMATION
  Report Type: Report from Study
  Country: US (occurrence: US)
  Receive Date: 20180327
  Receipt Date: 20180327
  Transmission Date: 20180509
  Serious: Yes (Death, Life-Threatening, Other)
  Sender: FDA-Public Use
  Company Number: US-MYLANLABS-2018M1020944

PATIENT
  Age: 16 Year
  Sex: Male

DRUGS (4)
  1. HYDROXYZINE [Suspect]
     Active Substance: HYDROXYZINE HYDROCHLORIDE
     Indication: PRODUCT USED FOR UNKNOWN INDICATION
     Route: 065
  2. BUPROPION. [Suspect]
     Active Substance: BUPROPION
     Indication: PRODUCT USED FOR UNKNOWN INDICATION
     Route: 065
  3. LAMOTRIGINE. [Suspect]
     Active Substance: LAMOTRIGINE
     Indication: PRODUCT USED FOR UNKNOWN INDICATION
     Route: 065
  4. GUANFACINE. [Suspect]
     Active Substance: GUANFACINE
     Indication: PRODUCT USED FOR UNKNOWN INDICATION
     Route: 065

REACTIONS (15)
  - Tachycardia [Unknown]
  - Asthenia [Unknown]
  - Hypotension [Unknown]
  - Hallucination [Unknown]
  - Paralysis [Unknown]
  - Gastrointestinal haemorrhage [Unknown]
  - Electrocardiogram QRS complex prolonged [Unknown]
  - Coma [Unknown]
  - Anion gap abnormal [Unknown]
  - Depressed level of consciousness [Unknown]
  - Delirium [Unknown]
  - Paraesthesia [Unknown]
  - Toxicity to various agents [Fatal]
  - Respiratory depression [Unknown]
  - Agitation [Unknown]
